FAERS Safety Report 15673903 (Version 1)
Quarter: 2018Q4

REPORT INFORMATION
  Report Type: Report from Study
  Country: US (occurrence: US)
  Receive Date: 20181129
  Receipt Date: 20181129
  Transmission Date: 20190205
  Serious: Yes (Other)
  Sender: FDA-Public Use
  Company Number: US-MYLANLABS-2018M1088819

PATIENT
  Age: 60 Year
  Sex: Male

DRUGS (2)
  1. PERCOCET                           /00446701/ [Suspect]
     Active Substance: ACETAMINOPHEN\OXYCODONE HYDROCHLORIDE\OXYCODONE TEREPHTHALATE
     Indication: PRODUCT USED FOR UNKNOWN INDICATION
     Dosage: OXYCODONE/PARACETAMOL : 10/325MG
     Route: 065
  2. METHADONE [Suspect]
     Active Substance: METHADONE HYDROCHLORIDE
     Indication: PRODUCT USED FOR UNKNOWN INDICATION
     Route: 065

REACTIONS (5)
  - Unresponsive to stimuli [Recovered/Resolved]
  - Overdose [Recovering/Resolving]
  - Miosis [Unknown]
  - Loss of consciousness [Recovered/Resolved]
  - Dysarthria [Unknown]
